FAERS Safety Report 23809923 (Version 1)
Quarter: 2024Q2

REPORT INFORMATION
  Report Type: Spontaneous
  Country: UA (occurrence: UA)
  Receive Date: 20240502
  Receipt Date: 20240502
  Transmission Date: 20240715
  Serious: Yes (Death)
  Sender: FDA-Public Use
  Company Number: UA-MYLANLABS-2024M1039997

PATIENT
  Age: 53 Year
  Sex: Male

DRUGS (6)
  1. PRETOMANID [Suspect]
     Active Substance: PRETOMANID
     Indication: Pulmonary tuberculosis
     Dosage: 0.2 GRAM, QD
     Route: 048
     Dates: start: 20240326, end: 20240404
  2. LAMPRENE [Concomitant]
     Active Substance: CLOFAZIMINE
     Dosage: 0.1 GRAM, QD
     Route: 065
     Dates: start: 20240404, end: 20240408
  3. DELAMANID [Concomitant]
     Active Substance: DELAMANID
     Dosage: 0.2 GRAM, QD
     Route: 065
     Dates: start: 20240404, end: 20240408
  4. CYCLOSERINE [Concomitant]
     Active Substance: CYCLOSERINE
     Dosage: 0.25 GRAM, QD (1/DAY)
     Route: 065
     Dates: start: 20240404, end: 20240408
  5. LIZOMAC [Concomitant]
     Dosage: 0.3 GRAM, QD
     Route: 065
     Dates: start: 20240326, end: 20240408
  6. SIRTURO [Concomitant]
     Active Substance: BEDAQUILINE FUMARATE
     Dosage: 0.2 GRAM, 3XW (3/7 DAYS)
     Route: 065
     Dates: start: 20240404, end: 20240408

REACTIONS (1)
  - Death [Fatal]

NARRATIVE: CASE EVENT DATE: 20240408
